FAERS Safety Report 24569969 (Version 12)
Quarter: 2025Q1

REPORT INFORMATION
  Report Type: Spontaneous
  Country: US (occurrence: US)
  Receive Date: 20241031
  Receipt Date: 20250211
  Transmission Date: 20250409
  Serious: Yes (Hospitalization, Other)
  Sender: Day One Biopharmaceuticals
  Company Number: US-Day One Biopharmaceuticals Inc.-2024US001060

PATIENT

DRUGS (3)
  1. OJEMDA [Suspect]
     Active Substance: TOVORAFENIB
     Indication: Glioma
     Route: 065
     Dates: start: 20240604, end: 2024
  2. OJEMDA [Suspect]
     Active Substance: TOVORAFENIB
     Indication: Optic nerve neoplasm
     Dosage: 13 ML ONCE WEEKLY
     Route: 065
     Dates: start: 2024
  3. OJEMDA [Suspect]
     Active Substance: TOVORAFENIB
     Route: 065
     Dates: start: 2024

REACTIONS (6)
  - Seizure [Not Recovered/Not Resolved]
  - Bacteraemia [Not Recovered/Not Resolved]
  - Central pain syndrome [Not Recovered/Not Resolved]
  - Staphylococcal infection [Unknown]
  - Incorrect dose administered [Unknown]
  - Hypersomnia [Unknown]

NARRATIVE: CASE EVENT DATE: 20240101
